APPROVED DRUG PRODUCT: EXKIVITY
Active Ingredient: MOBOCERTINIB SUCCINATE
Strength: EQ 40MG BASE
Dosage Form/Route: CAPSULE;ORAL
Application: N215310 | Product #001
Applicant: TAKEDA PHARMACEUTICALS USA INC
Approved: Sep 15, 2021 | RLD: Yes | RS: No | Type: DISCN

PATENTS:
Patent 10227342 | Expires: May 13, 2035
Patent 9796712 | Expires: May 13, 2035

EXCLUSIVITY:
Code: NCE | Date: Sep 15, 2026
Code: ODE-374 | Date: Sep 15, 2028